FAERS Safety Report 4354912-8 (Version None)
Quarter: 2004Q2

REPORT INFORMATION
  Report Type: 
  Country: None (occurrence: None)
  Receive Date: 20040505
  Receipt Date: 20040427
  Transmission Date: 20050107
  Serious: Yes (Other)
  Sender: FDA-Public Use
  Company Number: 2004028739

PATIENT
  Age: 22 Year
  Sex: Female
  Weight: 51.2565 kg

DRUGS (1)
  1. UNISOM SLEEPGELS (DIPHENHYDRAMINE) [Suspect]
     Indication: INSOMNIA
     Dosage: 1-2 SLEEPGELS HS, ORAL
     Route: 048

REACTIONS (4)
  - APHAGIA [None]
  - DRUG DEPENDENCE [None]
  - FEELING ABNORMAL [None]
  - VOMITING [None]
